FAERS Safety Report 21734133 (Version 1)
Quarter: 2022Q4

REPORT INFORMATION
  Report Type: Spontaneous
  Country: US (occurrence: None)
  Receive Date: 20221215
  Receipt Date: 20221215
  Transmission Date: 20230113
  Serious: Yes (Hospitalization)
  Sender: FDA-Public Use
  Company Number: None

PATIENT
  Age: 49 Year
  Sex: Female
  Weight: 104.5 kg

DRUGS (1)
  1. ATORVASTATIN [Suspect]
     Active Substance: ATORVASTATIN
     Indication: Hyperlipidaemia
     Dosage: FREQUENCY : DAILY;?
     Route: 048
     Dates: end: 20220901

REACTIONS (7)
  - Fatigue [None]
  - Myalgia [None]
  - Liver function test increased [None]
  - Hypertransaminasaemia [None]
  - Blood creatine phosphokinase increased [None]
  - Rhabdomyolysis [None]
  - Immune-mediated myositis [None]

NARRATIVE: CASE EVENT DATE: 20220831
